FAERS Safety Report 7983545-7 (Version None)
Quarter: 2011Q4

REPORT INFORMATION
  Report Type: 
  Country: None (occurrence: None)
  Receive Date: 20111215
  Receipt Date: 20111206
  Transmission Date: 20120403
  Serious: Yes (Other)
  Sender: FDA-Public Use
  Company Number: US-ASTRAZENECA-2008UW17215

PATIENT
  Age: 61 Year
  Sex: Female
  Weight: 59 kg

DRUGS (6)
  1. PRILOSEC [Suspect]
     Route: 048
  2. PRILOSEC [Suspect]
     Route: 048
  3. PREMPRO [Concomitant]
  4. ZOMIG [Suspect]
     Indication: MIGRAINE
     Route: 048
     Dates: start: 20050101
  5. NEXIUM [Suspect]
     Route: 048
  6. PRILOSEC [Suspect]
     Route: 048

REACTIONS (12)
  - GASTROOESOPHAGEAL REFLUX DISEASE [None]
  - HEADACHE [None]
  - PAIN [None]
  - MALAISE [None]
  - DISABILITY [None]
  - CYTOGENETIC ABNORMALITY [None]
  - DRUG INEFFECTIVE [None]
  - APHAGIA [None]
  - MIGRAINE [None]
  - BARRETT'S OESOPHAGUS [None]
  - HEAD INJURY [None]
  - DRUG DOSE OMISSION [None]
